FAERS Safety Report 7308131-3 (Version None)
Quarter: 2011Q1

REPORT INFORMATION
  Report Type: 
  Country: None (occurrence: None)
  Receive Date: 20110223
  Receipt Date: 20110215
  Transmission Date: 20110831
  Serious: Yes (Hospitalization)
  Sender: FDA-Public Use
  Company Number: IE-MEDIMMUNE-MEDI-0012682

PATIENT
  Sex: Male

DRUGS (6)
  1. SYNAGIS [Suspect]
     Indication: HEART DISEASE CONGENITAL
     Route: 030
     Dates: start: 20110106, end: 20110106
  2. SYNAGIS [Suspect]
  3. FUROSEMIDE [Concomitant]
  4. SPIRONOLACTONE [Concomitant]
  5. ALFACALCIDOL [Concomitant]
  6. BILE SALTS COMPOUND TAB [Concomitant]

REACTIONS (2)
  - CARDIAC OPERATION [None]
  - BRONCHIOLITIS [None]
